FAERS Safety Report 16351570 (Version 1)
Quarter: 2019Q2

REPORT INFORMATION
  Report Type: Report from Study
  Country: None (occurrence: BR)
  Receive Date: 20190524
  Receipt Date: 20190524
  Transmission Date: 20190711
  Serious: Yes (Hospitalization, Other)
  Sender: FDA-Public Use
  Company Number: BR-ABBVIE-19K-020-2794723-00

PATIENT
  Sex: Female
  Weight: 70 kg

DRUGS (2)
  1. HUMIRA [Suspect]
     Active Substance: ADALIMUMAB
     Indication: RHEUMATOID ARTHRITIS
     Route: 058
     Dates: start: 20190116, end: 2019
  2. HUMIRA [Suspect]
     Active Substance: ADALIMUMAB
     Route: 058
     Dates: start: 201904

REACTIONS (7)
  - Mobility decreased [Unknown]
  - Musculoskeletal chest pain [Not Recovered/Not Resolved]
  - Forearm fracture [Recovering/Resolving]
  - Loss of personal independence in daily activities [Unknown]
  - Rib fracture [Recovering/Resolving]
  - Peripheral swelling [Not Recovered/Not Resolved]
  - Accident [Recovering/Resolving]

NARRATIVE: CASE EVENT DATE: 201903
